FAERS Safety Report 25360305 (Version 3)
Quarter: 2025Q3

REPORT INFORMATION
  Report Type: Spontaneous
  Country: US (occurrence: US)
  Receive Date: 20250527
  Receipt Date: 20250928
  Transmission Date: 20251021
  Serious: Yes (Hospitalization, Other)
  Sender: AMNEAL
  Company Number: US-AMNEAL PHARMACEUTICALS-2025-AMRX-01181

PATIENT
  Age: 3 Year
  Sex: Male
  Weight: 15.873 kg

DRUGS (10)
  1. VIGABATRIN [Suspect]
     Active Substance: VIGABATRIN
     Indication: Illness
     Dosage: 500MG IN 10ML OF WATER, 2 /DAY
     Route: 048
     Dates: start: 20250218
  2. VIGABATRIN [Suspect]
     Active Substance: VIGABATRIN
     Indication: Epilepsy
     Dosage: 650 MILLIGRAM, 2 /DAY (MIX 2 PACKETS IN 20 ML OF WATER AND GIVE/TAKE 13 ML (650 MG) TWO TIMES A DAY.
     Route: 048
  3. VIGABATRIN [Suspect]
     Active Substance: VIGABATRIN
     Indication: Seizure
     Dosage: 17 ML, 2 /DAY
     Route: 048
  4. DEPAKOTE [Suspect]
     Active Substance: DIVALPROEX SODIUM
     Indication: Product used for unknown indication
     Route: 065
  5. EPIDIOLEX [Concomitant]
     Active Substance: CANNABIDIOL
     Indication: Product used for unknown indication
     Route: 065
  6. EPIDIOLEX [Concomitant]
     Active Substance: CANNABIDIOL
     Route: 065
  7. CHILDRENS TYLENOL [Concomitant]
     Active Substance: ACETAMINOPHEN
     Indication: Product used for unknown indication
     Route: 065
  8. VIGABATRIN [Concomitant]
     Active Substance: VIGABATRIN
     Indication: Product used for unknown indication
     Route: 065
  9. SABRIL [Concomitant]
     Active Substance: VIGABATRIN
     Indication: Product used for unknown indication
     Route: 065
  10. CHILDREN^S CETIRIZINE HYDROCHLORIDE [Concomitant]
     Indication: Product used for unknown indication
     Route: 065

REACTIONS (11)
  - Seizure cluster [Recovered/Resolved]
  - Seizure [Recovered/Resolved]
  - Seizure [Recovered/Resolved]
  - Vomiting [Unknown]
  - Epilepsy [Recovered/Resolved]
  - Weight fluctuation [Unknown]
  - Photophobia [Unknown]
  - Sleep disorder [Unknown]
  - Aggression [Unknown]
  - Strabismus [Unknown]
  - Ear infection [Not Recovered/Not Resolved]

NARRATIVE: CASE EVENT DATE: 20250401
